FAERS Safety Report 5609533-3 (Version None)
Quarter: 2008Q1

REPORT INFORMATION
  Report Type: 
  Country: None (occurrence: None)
  Receive Date: 20080131
  Receipt Date: 20080124
  Transmission Date: 20080703
  Serious: Yes (Life-Threatening, Hospitalization)
  Sender: FDA-Public Use
  Company Number: DK-PFIZER INC-2006080856

PATIENT
  Sex: Male
  Weight: 79 kg

DRUGS (11)
  1. CABERGOLINE [Suspect]
     Indication: PARKINSON'S DISEASE
     Route: 048
     Dates: start: 20010101, end: 20051012
  2. ASPIRIN [Concomitant]
     Route: 048
  3. SELEGILINE HCL [Concomitant]
     Route: 048
  4. IMDUR [Concomitant]
     Route: 048
  5. FURIX [Concomitant]
     Route: 048
  6. ODRIK [Concomitant]
     Route: 048
  7. SPIRIX [Concomitant]
     Route: 048
  8. POTASSIUM CHLORIDE [Concomitant]
     Route: 048
  9. DIOVAN COMP [Concomitant]
     Route: 048
  10. SIMVASTATIN [Concomitant]
     Route: 048
  11. PLAVIX [Concomitant]
     Route: 048

REACTIONS (4)
  - ACUTE MYOCARDIAL INFARCTION [None]
  - ATRIOVENTRICULAR BLOCK COMPLETE [None]
  - CORONARY ARTERY OCCLUSION [None]
  - PERICARDITIS CONSTRICTIVE [None]
